FAERS Safety Report 7758126-0 (Version None)
Quarter: 2011Q3

REPORT INFORMATION
  Report Type: 
  Country: None (occurrence: None)
  Receive Date: 20110919
  Receipt Date: 20110914
  Transmission Date: 20111222
  Serious: No
  Sender: FDA-Public Use
  Company Number: US-BIOGENIDEC-2011BI035486

PATIENT
  Sex: Female

DRUGS (1)
  1. TYSABRI [Suspect]
     Indication: MULTIPLE SCLEROSIS
     Route: 042
     Dates: start: 20110520

REACTIONS (5)
  - VULVOVAGINAL MYCOTIC INFECTION [None]
  - ABDOMINAL ABSCESS [None]
  - VAGINAL DISCHARGE [None]
  - ANXIETY [None]
  - PRURITUS [None]
